FAERS Safety Report 11366212 (Version 2)
Quarter: 2015Q3

REPORT INFORMATION
  Report Type: Spontaneous
  Country: RU (occurrence: RU)
  Receive Date: 20150811
  Receipt Date: 20150818
  Transmission Date: 20151125
  Serious: Yes (Death)
  Sender: FDA-Public Use
  Company Number: RU-ABBVIE-15P-251-1441959-00

PATIENT

DRUGS (1)
  1. KALETRA [Suspect]
     Active Substance: LOPINAVIR\RITONAVIR
     Indication: MATERNAL EXPOSURE TIMING UNSPECIFIED
     Route: 064

REACTIONS (4)
  - Foetal distress syndrome [Fatal]
  - Foetal exposure during pregnancy [Unknown]
  - HIV infection [Fatal]
  - Placental infarction [Fatal]
